FAERS Safety Report 8912161 (Version 5)
Quarter: 2014Q2

REPORT INFORMATION
  Report Type: Spontaneous
  Country: US (occurrence: US)
  Receive Date: 20121116
  Receipt Date: 20140421
  Transmission Date: 20141212
  Serious: Yes (Hospitalization, Disabling, Other)
  Sender: FDA-Public Use
  Company Number: US-009507513-1211USA006141

PATIENT
  Sex: Female
  Weight: 53.97 kg

DRUGS (13)
  1. FOSAMAX [Suspect]
     Indication: OSTEOPOROSIS
     Dosage: 70 MG, QW
     Route: 048
     Dates: start: 2002, end: 2007
  2. SYNTHROID [Concomitant]
     Indication: HYPOTHYROIDISM
     Dosage: UNK
     Route: 048
  3. ZOLOFT [Concomitant]
     Indication: DEPRESSION
     Dosage: UNK
     Route: 048
  4. REMERON [Concomitant]
     Indication: DEPRESSION
     Dosage: UNK
     Route: 048
  5. LOSARTAN POTASSIUM AND HYDROCHLOROTHIAZIDE TABLETS [Concomitant]
     Indication: HYPERTENSION
     Route: 048
  6. FORTEO [Concomitant]
  7. GLUCOSAMINE [Concomitant]
  8. VITAMINS (UNSPECIFIED) [Concomitant]
  9. VITAMIN D (UNSPECIFIED) [Concomitant]
  10. ASCORBIC ACID [Concomitant]
  11. ASPIRIN [Concomitant]
     Indication: ISCHAEMIC STROKE
     Dosage: UNK
     Route: 048
  12. CITRACAL [Concomitant]
  13. BONIVA [Concomitant]
     Dosage: UNK
     Dates: start: 2007, end: 2011

REACTIONS (3)
  - Femur fracture [Recovered/Resolved]
  - Spinal column stenosis [Recovering/Resolving]
  - Femur fracture [Recovering/Resolving]
